FAERS Safety Report 24589675 (Version 1)
Quarter: 2024Q4

REPORT INFORMATION
  Report Type: Spontaneous
  Country: US (occurrence: None)
  Receive Date: 20241106
  Receipt Date: 20241106
  Transmission Date: 20250115
  Serious: Yes (Disabling)
  Sender: Public
  Company Number: None

PATIENT
  Age: 80 Year
  Sex: Male
  Weight: 79.2 kg

DRUGS (9)
  1. LEVETIRACETAM [Suspect]
     Active Substance: LEVETIRACETAM
     Indication: Essential tremor
     Dosage: OTHER QUANTITY : 1 CAPSULE(S);?FREQUENCY : DAILY;?
     Route: 048
  2. DONEPEZIL [Suspect]
     Active Substance: DONEPEZIL
  3. OMEPRAZOLE [Concomitant]
     Active Substance: OMEPRAZOLE
  4. VITAMIN C [Concomitant]
     Active Substance: ASCORBIC ACID
  5. D [Concomitant]
  6. POTASSIUM [Concomitant]
     Active Substance: POTASSIUM
  7. GLUCOSAMINE [Concomitant]
     Active Substance: GLUCOSAMINE
  8. Chondrotin [Concomitant]
  9. LUTEIN [Concomitant]
     Active Substance: LUTEIN

REACTIONS (4)
  - Cognitive disorder [None]
  - Balance disorder [None]
  - Weight increased [None]
  - Intentional product use issue [None]

NARRATIVE: CASE EVENT DATE: 20240214
